FAERS Safety Report 5850436-7 (Version None)
Quarter: 2008Q3

REPORT INFORMATION
  Report Type: 
  Country: None (occurrence: None)
  Receive Date: 20080819
  Receipt Date: 20080811
  Transmission Date: 20090109
  Serious: Yes (Hospitalization, Other)
  Sender: FDA-Public Use
  Company Number: US-PFIZER INC-2007029522

PATIENT
  Sex: Male
  Weight: 89 kg

DRUGS (3)
  1. CELEBREX [Suspect]
     Indication: ARTHRALGIA
     Route: 048
  2. CELEBREX [Suspect]
     Indication: MYALGIA
  3. CELEBREX [Suspect]
     Indication: NERVE INJURY

REACTIONS (7)
  - ACUTE MYOCARDIAL INFARCTION [None]
  - ATRIAL FIBRILLATION [None]
  - DEPRESSION [None]
  - HEART INJURY [None]
  - LUNG INJURY [None]
  - PERICARDIAL EFFUSION [None]
  - TACHYARRHYTHMIA [None]
